FAERS Safety Report 15847302 (Version 2)
Quarter: 2019Q1

REPORT INFORMATION
  Report Type: Spontaneous
  Country: FR (occurrence: FR)
  Receive Date: 20190121
  Receipt Date: 20190207
  Transmission Date: 20190417
  Serious: Yes (Hospitalization, Other)
  Sender: FDA-Public Use
  Company Number: FR-AUROBINDO-AUR-APL-2019-001853

PATIENT

DRUGS (2)
  1. ACICLOVIR [Suspect]
     Active Substance: ACYCLOVIR
     Dosage: 500 MILLIGRAM/SQ. METER, ONCE A DAY
     Route: 065
  2. ACICLOVIR [Suspect]
     Active Substance: ACYCLOVIR
     Indication: ENCEPHALITIS
     Dosage: 1500 MILLIGRAM/SQ. METER,  ONCE A DAY, 500 MG/M2, TID
     Route: 065

REACTIONS (1)
  - Acute kidney injury [Recovering/Resolving]
